FAERS Safety Report 15346747 (Version 10)
Quarter: 2019Q1

REPORT INFORMATION
  Report Type: Report from Study
  Country: CA (occurrence: CA)
  Receive Date: 20180904
  Receipt Date: 20190215
  Transmission Date: 20190417
  Serious: Yes (Other)
  Sender: FDA-Public Use
  Company Number: PHHY2018CA042976

PATIENT
  Age: 43 Year
  Sex: Female

DRUGS (5)
  1. SANDOSTATIN [Suspect]
     Active Substance: OCTREOTIDE ACETATE
     Indication: ACROMEGALY
     Dosage: 100 UG, BID (FOR 1 MONTH)
     Route: 058
     Dates: start: 2010
  2. SANDOSTATIN LAR DEPOT [Suspect]
     Active Substance: OCTREOTIDE ACETATE
     Indication: ACROMEGALY
     Dosage: 30 MG, BIW (EVERY TWO WEEKS)
     Route: 030
     Dates: start: 20090119
  3. VENLAFAXINE HYDROCHLORIDE. [Suspect]
     Active Substance: VENLAFAXINE HYDROCHLORIDE
     Indication: PRODUCT USED FOR UNKNOWN INDICATION
     Dosage: 225 MG, QD
     Route: 065
     Dates: start: 2016
  4. BUPROPION SANDOZ [Suspect]
     Active Substance: BUPROPION
     Indication: PRODUCT USED FOR UNKNOWN INDICATION
     Dosage: 100 MG, BID
     Route: 065
     Dates: start: 201610
  5. METOPROLOL. [Suspect]
     Active Substance: METOPROLOL
     Indication: HEADACHE
     Dosage: 25 MG, QD
     Route: 065
     Dates: start: 2018

REACTIONS (6)
  - Dizziness [Not Recovered/Not Resolved]
  - Demyelination [Unknown]
  - White matter lesion [Not Recovered/Not Resolved]
  - Headache [Not Recovered/Not Resolved]
  - Cortisol decreased [Unknown]
  - Inappropriate schedule of product administration [Unknown]

NARRATIVE: CASE EVENT DATE: 20180808
